FAERS Safety Report 22144171 (Version 2)
Quarter: 2023Q1

REPORT INFORMATION
  Report Type: Report from Study
  Country: US (occurrence: US)
  Receive Date: 20230327
  Receipt Date: 20230329
  Transmission Date: 20230417
  Serious: Yes (Other)
  Sender: FDA-Public Use
  Company Number: US-ABBVIE-4700953

PATIENT
  Sex: Female

DRUGS (2)
  1. HUMIRA [Suspect]
     Active Substance: ADALIMUMAB
     Indication: Psoriasis
     Route: 058
     Dates: start: 20220317, end: 20230317
  2. HUMIRA [Suspect]
     Active Substance: ADALIMUMAB
     Route: 058
     Dates: start: 20220318

REACTIONS (13)
  - Transient ischaemic attack [Unknown]
  - Hypertension [Unknown]
  - Vascular parkinsonism [Unknown]
  - Primary immunodeficiency syndrome [Unknown]
  - Memory impairment [Unknown]
  - Terminal ileitis [Unknown]
  - Anxiety [Unknown]
  - Balance disorder [Unknown]
  - Blood cholesterol increased [Unknown]
  - Scar [Unknown]
  - Hypersomnia [Unknown]
  - Depression [Unknown]
  - Fall [Unknown]
